FAERS Safety Report 5176958-2 (Version None)
Quarter: 2006Q4

REPORT INFORMATION
  Report Type: 
  Country: None (occurrence: None)
  Receive Date: 20061212
  Receipt Date: 20061212
  Transmission Date: 20070319
  Serious: Yes (Other)
  Sender: FDA-Public Use
  Company Number: None

PATIENT
  Age: 52 Year
  Sex: Female
  Weight: 79.3795 kg

DRUGS (2)
  1. ZOLOFT [Suspect]
     Indication: HOT FLUSH
     Dosage: ONCE A DAY
  2. ZOLOFT [Suspect]
     Indication: PROPHYLAXIS
     Dosage: ONCE A DAY

REACTIONS (2)
  - DRUG INEFFECTIVE [None]
  - PHARMACEUTICAL PRODUCT COMPLAINT [None]
